FAERS Safety Report 8080859-X (Version None)
Quarter: 2012Q1

REPORT INFORMATION
  Report Type: 
  Country: None (occurrence: None)
  Receive Date: 20120130
  Receipt Date: 20111227
  Transmission Date: 20120608
  Serious: No
  Sender: FDA-Public Use
  Company Number: US-MUTUAL PHARMACEUTICAL COMPANY, INC.-CLCY20110163

PATIENT
  Sex: Female
  Weight: 55.842 kg

DRUGS (4)
  1. ALLOPURINOL [Concomitant]
     Indication: BLOOD URIC ACID
     Route: 048
  2. COLCRYS [Suspect]
     Indication: GOUT
     Route: 048
     Dates: start: 20100101
  3. UNSPECIFIED MEDICATION FOR HIGH BLOOD PRESSURE [Concomitant]
     Indication: HYPERTENSION
     Route: 065
  4. UNSPECIFIED MEDICATION FOR EYES [Concomitant]
     Indication: EYE DISORDER
     Route: 065

REACTIONS (5)
  - EPISTAXIS [None]
  - DIARRHOEA [None]
  - PARAESTHESIA [None]
  - IMPAIRED HEALING [None]
  - HYPOAESTHESIA [None]
